FAERS Safety Report 7020542-2 (Version None)
Quarter: 2010Q3

REPORT INFORMATION
  Report Type: 
  Country: None (occurrence: None)
  Receive Date: 20100929
  Receipt Date: 20100920
  Transmission Date: 20110219
  Serious: Yes (Hospitalization)
  Sender: FDA-Public Use
  Company Number: US-KINGPHARMUSA00001-K201001178

PATIENT
  Sex: Male
  Weight: 83.9 kg

DRUGS (11)
  1. LEVOXYL [Suspect]
     Indication: HYPERTHYROIDISM
     Dosage: 50 MCG, QD
     Route: 048
  2. LEVOXYL [Suspect]
     Dosage: 112 MCG, QD
     Route: 048
  3. LEVOXYL [Suspect]
     Dosage: 100 MCG, QD
     Route: 048
  4. FUROSEMIDE [Concomitant]
     Indication: DIURETIC THERAPY
     Dosage: 40 MG, QD
     Route: 048
  5. CALCITRIOL [Concomitant]
     Dosage: UNK, QD
     Route: 048
  6. ENALAPRIL MALEATE [Concomitant]
     Dosage: 20 MG, QID
     Route: 048
  7. METOPROLOL TARTRATE [Concomitant]
     Dosage: 25 MG, BID
     Route: 048
  8. PRAVASTATIN [Concomitant]
     Dosage: 80 MG, QD
  9. COUMADIN [Concomitant]
     Indication: PROPHYLAXIS
     Dosage: UNK, QD
     Route: 048
  10. FOLIC ACID [Concomitant]
     Indication: SUPPLEMENTATION THERAPY
     Dosage: UNK, QD
     Route: 048
  11. PROTONIX [Concomitant]
     Indication: POST PROCEDURAL HAEMORRHAGE
     Dosage: UNK, QD
     Route: 048

REACTIONS (7)
  - AORTIC VALVE STENOSIS [None]
  - HEART RATE DECREASED [None]
  - INCORRECT DOSE ADMINISTERED [None]
  - PANCREATIC ENZYMES INCREASED [None]
  - RENAL FUNCTION TEST ABNORMAL [None]
  - RENAL IMPAIRMENT [None]
  - URINARY RETENTION [None]
